FAERS Safety Report 4463812-4 (Version None)
Quarter: 2004Q3

REPORT INFORMATION
  Report Type: 
  Country: None (occurrence: None)
  Receive Date: 20040929
  Receipt Date: 20040913
  Transmission Date: 20050211
  Serious: No
  Sender: FDA-Public Use
  Company Number: 2004AC00299

PATIENT
  Age: 6 Month
  Sex: Male
  Weight: 6.7 kg

DRUGS (5)
  1. PROPOFOL [Suspect]
     Indication: ANAESTHESIA
     Dosage: 44.7 MG/KG  /HR IV
     Route: 042
  2. FENTANYL [Concomitant]
  3. THIOPENTAL SODIUM [Concomitant]
  4. CISATRACURIUM [Concomitant]
  5. REMIFENTANIL [Concomitant]

REACTIONS (7)
  - ACCIDENTAL OVERDOSE [None]
  - BLOOD PRESSURE SYSTOLIC DECREASED [None]
  - CARDIAC FAILURE [None]
  - HAEMOGLOBIN DECREASED [None]
  - HEART RATE INCREASED [None]
  - HYPOTENSION [None]
  - MEDICATION ERROR [None]
